FAERS Safety Report 4365526-8 (Version None)
Quarter: 2004Q2

REPORT INFORMATION
  Report Type: 
  Country: None (occurrence: None)
  Receive Date: 20040526
  Receipt Date: 20040223
  Transmission Date: 20050107
  Serious: Yes (Hospitalization)
  Sender: FDA-Public Use
  Company Number: JP-GLAXOSMITHKLINE-B0324522A

PATIENT
  Age: 37 Year
  Sex: Female

DRUGS (5)
  1. PAXIL [Suspect]
     Indication: DYSTHYMIC DISORDER
     Dosage: 20MG PER DAY
     Route: 048
     Dates: start: 20040218, end: 20040223
  2. SULPIRIDE [Concomitant]
     Dosage: 150MG PER DAY
     Dates: start: 20030909, end: 20040217
  3. ETIZOLAM [Concomitant]
  4. BROTIZOLAM [Concomitant]
     Dosage: 15MG PER DAY
     Dates: end: 20040227
  5. METHOTRIMEPRAZINE [Concomitant]
     Dates: start: 20040121, end: 20040227

REACTIONS (15)
  - ANOREXIA [None]
  - CHEST PAIN [None]
  - DYSKINESIA [None]
  - DYSPNOEA [None]
  - FEAR [None]
  - HYPERACUSIS [None]
  - HYPERAESTHESIA [None]
  - HYPERVENTILATION [None]
  - MUSCLE TIGHTNESS [None]
  - MUTISM [None]
  - PALPITATIONS [None]
  - PHOTOSENSITIVITY REACTION [None]
  - PYREXIA [None]
  - REGRESSIVE BEHAVIOUR [None]
  - SPEECH DISORDER [None]
